FAERS Safety Report 7834731-8 (Version None)
Quarter: 2011Q4

REPORT INFORMATION
  Report Type: 
  Country: None (occurrence: None)
  Receive Date: 20111024
  Receipt Date: 20111013
  Transmission Date: 20120403
  Serious: Yes (Other)
  Sender: FDA-Public Use
  Company Number: CA-JNJFOC-20111007897

PATIENT
  Sex: Male
  Weight: 95.4 kg

DRUGS (6)
  1. RITONAVIR [Concomitant]
  2. REMICADE [Suspect]
     Dosage: 25TH INFUSION
     Route: 042
     Dates: start: 20111013
  3. REMICADE [Suspect]
     Indication: CROHN'S DISEASE
     Route: 042
  4. IMURAN [Concomitant]
     Dosage: 2 TABS
  5. TRUVADA [Concomitant]
  6. ATAZANAVIR [Concomitant]

REACTIONS (1)
  - HERPES ZOSTER [None]
